FAERS Safety Report 4576725-4 (Version None)
Quarter: 2005Q1

REPORT INFORMATION
  Report Type: 
  Country: None (occurrence: None)
  Receive Date: 20050207
  Receipt Date: 20050124
  Transmission Date: 20050727
  Serious: Yes (Hospitalization)
  Sender: FDA-Public Use
  Company Number: 2005020303

PATIENT
  Age: 56 Year
  Sex: Female
  Weight: 102.0593 kg

DRUGS (6)
  1. EPIRUBICIN [Suspect]
     Indication: BREAST CANCER
     Dosage: 1500 MG (1 IN 21 D), INTRAVENOUS
     Route: 042
     Dates: start: 20041108
  2. CYCLOPHOSPHAMIDE [Suspect]
     Indication: BREAST CANCER
     Dosage: 1000 MG (1 IN 21 D), INTRAVENOUS
     Route: 042
     Dates: start: 20041108
  3. DOCETAXEL (DOCETAXEL) [Suspect]
     Indication: BREAST CANCER
     Dosage: 150 MG (1 IN 21 D), INTRAVENOUS
     Route: 042
     Dates: start: 20041108
  4. DARBEPOETIN ALFA (DARBEPOETIN ALFA) [Suspect]
     Indication: ANAEMIA OF MALIGNANT DISEASE
     Dosage: SEE IMAGE
     Route: 058
     Dates: start: 20040917
  5. DARBEPOETIN ALFA (DARBEPOETIN ALFA) [Suspect]
     Indication: ANAEMIA OF MALIGNANT DISEASE
     Dosage: SEE IMAGE
     Route: 058
     Dates: start: 20041018
  6. ERYTHROPOIETIN (ERYTHROPOIETIN) [Suspect]
     Indication: ANAEMIA OF MALIGNANT DISEASE
     Dosage: INTRAVENOUS
     Route: 042

REACTIONS (6)
  - ASTHENIA [None]
  - BLOOD POTASSIUM DECREASED [None]
  - HAEMATOCRIT DECREASED [None]
  - HAEMOGLOBIN DECREASED [None]
  - POLYDIPSIA [None]
  - WHITE BLOOD CELL COUNT DECREASED [None]
